FAERS Safety Report 9539166 (Version 1)
Quarter: 2013Q2

REPORT INFORMATION
  Report Type: Spontaneous
  Country: US (occurrence: None)
  Receive Date: 20130521
  Receipt Date: 20130521
  Transmission Date: 20140414
  Serious: No
  Sender: FDA-Public Use
  Company Number: 1000044663

PATIENT
  Age: 89 Year
  Sex: Male

DRUGS (6)
  1. TUDORZA PRESSAIR [Suspect]
     Indication: EMPHYSEMA
     Dosage: 800 MCG (400 MCG, 2 IN 1 D),ORAL
     Route: 048
     Dates: start: 201304
  2. BYSTOLIC (NEBIVOLOL HYDROCHLORIDE) (NEBIVOLOL HYDROCHLORIDE) [Concomitant]
  3. LOSARTAN (LOSARTAN) (LOSARTAN) [Concomitant]
  4. THEOPHYLLINE (THEOPHYLINE) (THEIPHYLLINE) [Concomitant]
  5. LIPITOR (ATORVASTATIN CALCIUM) (ATORVASTATIN CALCIUM) [Concomitant]
  6. JAYLN (DUTAS-T) (DUTAS-T) [Concomitant]

REACTIONS (1)
  - Dysuria [None]
